FAERS Safety Report 5452610-0 (Version None)
Quarter: 2007Q3

REPORT INFORMATION
  Report Type: 
  Country: None (occurrence: None)
  Receive Date: 20070914
  Receipt Date: 20070906
  Transmission Date: 20080115
  Serious: Yes (Other)
  Sender: FDA-Public Use
  Company Number: NL-AVENTIS-200717854GDDC

PATIENT
  Age: 64 Year
  Sex: Female
  Weight: 62 kg

DRUGS (5)
  1. TAXOTERE [Suspect]
     Route: 041
     Dates: start: 20010727, end: 20010727
  2. TAXOTERE [Suspect]
     Route: 041
     Dates: start: 20010817, end: 20010817
  3. TAXOTERE [Suspect]
     Route: 041
     Dates: start: 20010906, end: 20010906
  4. EPIRUBICIN [Suspect]
     Route: 042
     Dates: start: 20010504, end: 20010706
  5. TAMOXIFEN [Suspect]
     Route: 048
     Dates: start: 20010504, end: 20030715

REACTIONS (1)
  - CONTRALATERAL BREAST CANCER [None]
